FAERS Safety Report 4978542-X (Version None)
Quarter: 2006Q1

REPORT INFORMATION
  Report Type: 
  Country: None (occurrence: None)
  Receive Date: 20060216
  Receipt Date: 20051109
  Transmission Date: 20060701
  Serious: No
  Sender: FDA-Public Use
  Company Number: TPA2005A01465

PATIENT
  Age: 45 Year
  Sex: Female
  Weight: 66.6788 kg

DRUGS (2)
  1. ROZEREM [Suspect]
     Indication: INSOMNIA
     Dosage: 8 MG, QHS, PER ORAL
     Route: 048
     Dates: start: 20051104, end: 20051107
  2. AMBIEN (ZOLPIDEM TARTRATE) (10 MILLIGRAM) [Concomitant]

REACTIONS (5)
  - CENTRAL NERVOUS SYSTEM STIMULATION [None]
  - FEELING JITTERY [None]
  - FORMICATION [None]
  - INSOMNIA [None]
  - OVERDOSE [None]
